FAERS Safety Report 16805300 (Version 1)
Quarter: 2019Q4

REPORT INFORMATION
  Report Type: Spontaneous
  Country: US (occurrence: US)
  Receive Date: 20190913
  Receipt Date: 20190913
  Transmission Date: 20200122
  Serious: Yes (Disabling)
  Sender: FDA-Public Use
  Company Number: None

PATIENT
  Age: 55 Year
  Sex: Female
  Weight: 85.5 kg

DRUGS (6)
  1. NAC [Concomitant]
     Active Substance: ACETYLCYSTEINE
  2. CATALASE [Concomitant]
  3. LIPITOR [Suspect]
     Active Substance: ATORVASTATIN CALCIUM
     Indication: BLOOD CHOLESTEROL INCREASED
     Route: 048
     Dates: start: 20070907, end: 20100901
  4. NPTYHROID [Concomitant]
  5. PYCNOGENOL [Concomitant]
     Active Substance: DIETARY SUPPLEMENT
  6. AGMASET [Concomitant]

REACTIONS (2)
  - Neuropathy peripheral [None]
  - Paraesthesia [None]

NARRATIVE: CASE EVENT DATE: 20090901
